FAERS Safety Report 4553248-X (Version None)
Quarter: 2005Q1

REPORT INFORMATION
  Report Type: 
  Country: None (occurrence: None)
  Receive Date: 20050113
  Receipt Date: 20050105
  Transmission Date: 20050727
  Serious: Yes (Hospitalization, Other)
  Sender: FDA-Public Use
  Company Number: 2005004644

PATIENT
  Age: 78 Year
  Sex: Male
  Weight: 67 kg

DRUGS (8)
  1. FLUCONAZOLE [Suspect]
     Indication: FUNGAL INFECTION
     Dosage: 1 D, ORAL
     Route: 048
     Dates: start: 20040723, end: 20040727
  2. CLAVULIN (AMOXICILLIN TRIHYDRATE, CLAVULANTE POTASSIUM) [Suspect]
     Indication: PNEUMONIA BACTERIAL
     Dosage: 3 GRAM (1 GRAM, 3 IN 1 D), ORAL
     Route: 048
     Dates: start: 20040721, end: 20040726
  3. ACAMPROSATE (ACAMPROSATE) [Suspect]
     Indication: ALCOHOLISM
     Dosage: 1998 MG (333 MG, 1 IN 1 D), ORAL
     Route: 048
     Dates: start: 20040718, end: 20040727
  4. FLUINDIONE (FLUINDIONE) [Concomitant]
  5. LANSOPRAZOLE [Concomitant]
  6. ENALAPRIL MALEATE [Concomitant]
  7. AMIODARONE HCL [Concomitant]
  8. OXAZEPAM [Concomitant]

REACTIONS (4)
  - ALCOHOL WITHDRAWAL SYNDROME [None]
  - CHOLESTASIS [None]
  - CYTOLYTIC HEPATITIS [None]
  - RENAL FAILURE [None]
